FAERS Safety Report 25918149 (Version 1)
Quarter: 2025Q4

REPORT INFORMATION
  Report Type: Spontaneous
  Country: US (occurrence: US)
  Receive Date: 20251014
  Receipt Date: 20251014
  Transmission Date: 20260117
  Serious: No
  Sender: BAXTER
  Company Number: US-BAXTER-2025BAX022462

PATIENT
  Age: 79 Year
  Sex: Male

DRUGS (2)
  1. NITROGLYCERIN IN DEXTROSE [Suspect]
     Active Substance: NITROGLYCERIN
     Indication: Interventional procedure
     Dosage: 100 UG (MCG), X 1, [STRENGTH: 0.1 MG/ML D5W], NDC 00338104702
     Route: 013
     Dates: start: 20251006, end: 20251006
  2. VERAPAMIL [Concomitant]
     Active Substance: VERAPAMIL HYDROCHLORIDE
     Indication: Interventional procedure
     Dosage: 2.5 MG, (5 MG/2ML), SDV, NDC 70069027101
     Route: 013
     Dates: start: 20251006, end: 20251006

REACTIONS (1)
  - Hypotension [Recovered/Resolved]

NARRATIVE: CASE EVENT DATE: 20251006
